FAERS Safety Report 12856818 (Version 2)
Quarter: 2016Q4

REPORT INFORMATION
  Report Type: Spontaneous
  Country: US (occurrence: US)
  Receive Date: 20161018
  Receipt Date: 20161124
  Transmission Date: 20170207
  Serious: No
  Sender: FDA-Public Use
  Company Number: US-PFIZER INC-2016484170

PATIENT
  Age: 57 Year
  Sex: Male
  Weight: 79 kg

DRUGS (7)
  1. TYVASO [Suspect]
     Active Substance: TREPROSTINIL
     Dosage: UNK
     Route: 055
  2. SILDENAFIL CITRATE. [Suspect]
     Active Substance: SILDENAFIL CITRATE
     Dosage: UNK
     Dates: end: 20160925
  3. TYVASO [Suspect]
     Active Substance: TREPROSTINIL
     Indication: PULMONARY ARTERIAL HYPERTENSION
     Dosage: UNK, 4X/DAY (18-54 MICROGRAM, QID, INHALATION)
     Route: 055
     Dates: start: 20131115
  4. UPTRAVI [Suspect]
     Active Substance: SELEXIPAG
     Dosage: UNK
  5. UPTRAVI [Suspect]
     Active Substance: SELEXIPAG
     Dosage: 800 UG, UNK
     Dates: start: 20161006
  6. UPTRAVI [Suspect]
     Active Substance: SELEXIPAG
     Dosage: 400 UG, DAILY
     Dates: start: 20160922
  7. UPTRAVI [Suspect]
     Active Substance: SELEXIPAG
     Dosage: 200 UG, DAILY
     Dates: start: 201610

REACTIONS (4)
  - Myalgia [Unknown]
  - Headache [Unknown]
  - Condition aggravated [Not Recovered/Not Resolved]
  - Musculoskeletal pain [Not Recovered/Not Resolved]

NARRATIVE: CASE EVENT DATE: 201609
